FAERS Safety Report 26060995 (Version 1)
Quarter: 2025Q4

REPORT INFORMATION
  Report Type: Spontaneous
  Country: CN (occurrence: CN)
  Receive Date: 20251118
  Receipt Date: 20251118
  Transmission Date: 20260118
  Serious: Yes (Other)
  Sender: ELI LILLY AND COMPANY
  Company Number: CN-ELI_LILLY_AND_COMPANY-CN202511013242

PATIENT
  Age: 57 Year
  Sex: Female
  Weight: 66 kg

DRUGS (2)
  1. ABEMACICLIB [Suspect]
     Active Substance: ABEMACICLIB
     Indication: Prophylaxis
     Dosage: 150 MG, BID
     Route: 048
     Dates: start: 20220901, end: 20220922
  2. ANASTROZOLE [Concomitant]
     Active Substance: ANASTROZOLE
     Indication: Prophylaxis
     Dosage: UNK UNK, UNKNOWN

REACTIONS (1)
  - Myelosuppression [Recovering/Resolving]

NARRATIVE: CASE EVENT DATE: 20250922
